FAERS Safety Report 4883914-8 (Version None)
Quarter: 2006Q1

REPORT INFORMATION
  Report Type: 
  Country: None (occurrence: None)
  Receive Date: 20060113
  Receipt Date: 20060103
  Transmission Date: 20060701
  Serious: Yes (Hospitalization)
  Sender: FDA-Public Use
  Company Number: B0405999A

PATIENT
  Age: 73 Year
  Sex: Male

DRUGS (2)
  1. LAMICTAL [Suspect]
  2. VALPROIC ACID [Suspect]

REACTIONS (6)
  - ATELECTASIS [None]
  - BLOOD ALBUMIN DECREASED [None]
  - BLOOD CALCIUM DECREASED [None]
  - LUNG INFILTRATION [None]
  - PROTEIN TOTAL DECREASED [None]
  - STEVENS-JOHNSON SYNDROME [None]
